FAERS Safety Report 9975038 (Version 1)
Quarter: 2014Q1

REPORT INFORMATION
  Report Type: Report from Study
  Country: US (occurrence: US)
  Receive Date: 20140306
  Receipt Date: 20140306
  Transmission Date: 20141002
  Serious: No
  Sender: FDA-Public Use
  Company Number: US-ABBVIE-13P-163-1159942-00

PATIENT
  Sex: Male
  Weight: 48.12 kg

DRUGS (14)
  1. HUMIRA [Suspect]
     Indication: BEHCET^S SYNDROME
     Dates: start: 201210
  2. METHOTREXATE [Concomitant]
     Indication: BEHCET^S SYNDROME
  3. FOLIC ACID [Concomitant]
     Indication: VITAMIN SUPPLEMENTATION
  4. OMEPRAZOLE [Concomitant]
     Indication: ABDOMINAL DISCOMFORT
  5. ZYRTEC [Concomitant]
     Indication: HYPERSENSITIVITY
  6. ELAVIL [Concomitant]
     Indication: MIGRAINE
  7. DEPAKOTE [Concomitant]
     Indication: MIGRAINE
  8. PHENERGAN [Concomitant]
     Indication: MIGRAINE
  9. MAXALT [Concomitant]
     Indication: MIGRAINE
  10. ZOFRAN [Concomitant]
     Indication: ABDOMINAL DISCOMFORT
  11. REGLAN [Concomitant]
     Indication: ABDOMINAL DISCOMFORT
  12. IMITREX [Concomitant]
     Indication: MIGRAINE
  13. HYDROCODONE [Concomitant]
     Indication: PAIN
  14. BENADRYL [Concomitant]
     Indication: PRODUCT USED FOR UNKNOWN INDICATION

REACTIONS (2)
  - Off label use [Not Recovered/Not Resolved]
  - Injection site pain [Recovered/Resolved]
